FAERS Safety Report 8273268-1 (Version None)
Quarter: 2012Q2

REPORT INFORMATION
  Report Type: 
  Country: None (occurrence: None)
  Receive Date: 20120411
  Receipt Date: 20120405
  Transmission Date: 20120825
  Serious: Yes (Other)
  Sender: FDA-Public Use
  Company Number: US-PFIZER INC-2011316554

PATIENT
  Sex: Female
  Weight: 106 kg

DRUGS (6)
  1. CETIRIZINE [Concomitant]
     Indication: SINUS DISORDER
     Dosage: 10 MG, DAILY
  2. TRIAMTERENE [Concomitant]
     Indication: BLOOD PRESSURE ABNORMAL
  3. BEXTRA [Suspect]
     Indication: TENDONITIS
     Dosage: 20 MG, 1X/DAY
     Route: 048
     Dates: start: 20040101
  4. BEXTRA [Suspect]
     Indication: PAIN IN EXTREMITY
  5. TRIAMTERENE [Concomitant]
     Indication: DIURETIC THERAPY
     Dosage: UNK, DAILY
  6. BEXTRA [Suspect]
     Indication: OEDEMA PERIPHERAL
     Dosage: UNK
     Route: 048
     Dates: end: 20060101

REACTIONS (4)
  - OCULAR VASCULAR DISORDER [None]
  - VISION BLURRED [None]
  - VISUAL IMPAIRMENT [None]
  - MYDRIASIS [None]
